FAERS Safety Report 19170870 (Version 1)
Quarter: 2021Q2

REPORT INFORMATION
  Report Type: Spontaneous
  Country: FR (occurrence: FR)
  Receive Date: 20210423
  Receipt Date: 20210423
  Transmission Date: 20210717
  Serious: Yes (Other)
  Sender: FDA-Public Use
  Company Number: FR-AUROBINDO-AUR-APL-2021-016252

PATIENT
  Age: 92 Year
  Sex: Female
  Weight: 39 kg

DRUGS (2)
  1. AMOXICILLIN. [Suspect]
     Active Substance: AMOXICILLIN
     Dosage: 1 GRAM, ONCE A DAY
     Route: 042
     Dates: start: 20180803, end: 20180803
  2. AMOXICILLIN. [Suspect]
     Active Substance: AMOXICILLIN
     Indication: LUNG DISORDER
     Dosage: 2 GRAM, ONCE A DAY
     Route: 042
     Dates: start: 20180802, end: 20180802

REACTIONS (3)
  - Cholestasis [Recovered/Resolved]
  - Rash erythematous [Recovered/Resolved]
  - Rash papular [Recovered/Resolved]

NARRATIVE: CASE EVENT DATE: 20180803
